FAERS Safety Report 4602844-X (Version None)
Quarter: 2005Q1

REPORT INFORMATION
  Report Type: 
  Country: None (occurrence: None)
  Receive Date: 20050307
  Receipt Date: 20050302
  Transmission Date: 20050727
  Serious: Yes (Other)
  Sender: FDA-Public Use
  Company Number: 200410989BVD

PATIENT
  Sex: Male

DRUGS (1)
  1. AVELOX [Suspect]
     Dosage: ORAL
     Route: 048

REACTIONS (3)
  - AGEUSIA [None]
  - ANOSMIA [None]
  - ORAL MUCOSAL EXFOLIATION [None]
